FAERS Safety Report 22279304 (Version 6)
Quarter: 2024Q1

REPORT INFORMATION
  Report Type: Spontaneous
  Country: US (occurrence: US)
  Receive Date: 20230503
  Receipt Date: 20240215
  Transmission Date: 20240410
  Serious: Yes (Hospitalization, Other)
  Sender: FDA-Public Use
  Company Number: US-PFIZER INC-202300173947

PATIENT
  Age: 79 Year
  Sex: Male
  Weight: 90.7 kg

DRUGS (19)
  1. VYNDAMAX [Suspect]
     Active Substance: TAFAMIDIS
     Indication: Cardiac amyloidosis
     Dosage: 61 MG, 1X/DAY
     Route: 048
     Dates: start: 2019
  2. VYNDAMAX [Suspect]
     Active Substance: TAFAMIDIS
     Indication: Amyloidosis
     Dosage: 61 MG, 1X/DAY
  3. VYNDAMAX [Suspect]
     Active Substance: TAFAMIDIS
     Dosage: 61 MG, DAILY
  4. METOPROLOL TARTRATE [Concomitant]
     Active Substance: METOPROLOL TARTRATE
     Dosage: 25 MG, 2X/DAY
     Route: 048
  5. FUROSEMIDE [Concomitant]
     Active Substance: FUROSEMIDE
     Dosage: 40 MG, 1X/DAY
  6. SPIRONOLACTONE [Concomitant]
     Active Substance: SPIRONOLACTONE
     Indication: Diuretic therapy
     Dosage: 25 MG, 2X/DAY
  7. SPIRONOLACTONE [Concomitant]
     Active Substance: SPIRONOLACTONE
     Indication: Surgery
  8. VITAMIN B12 [Concomitant]
     Active Substance: CYANOCOBALAMIN
     Dosage: 1000 UG, 1X/DAY
  9. LEVOTHYROXINE [Concomitant]
     Active Substance: LEVOTHYROXINE\LEVOTHYROXINE SODIUM
     Dosage: 0.5 MG, 1X/DAY
  10. SIMVASTATIN [Concomitant]
     Active Substance: SIMVASTATIN
     Dosage: 40 MG, 1X/DAY
  11. LINAGLIPTIN [Concomitant]
     Active Substance: LINAGLIPTIN
     Dosage: 5 MG, 1X/DAY
     Dates: start: 202309
  12. FOLIC ACID [Concomitant]
     Active Substance: FOLIC ACID
     Dosage: 400 UG, 1X/DAY
  13. IRON [Concomitant]
     Active Substance: IRON
     Dosage: 65 MG, 1X/DAY
  14. HERBALS\PLANTAGO OVATA LEAF [Concomitant]
     Active Substance: HERBALS\PLANTAGO OVATA LEAF
     Dosage: UNK UNK, 1X/DAY
  15. METFORMIN [Concomitant]
     Active Substance: METFORMIN HYDROCHLORIDE
     Dosage: UNK
  16. JANTOVEN [Concomitant]
     Active Substance: WARFARIN SODIUM
     Dosage: 5 MG, 4 TIMES A WEEK
  17. VITAMIN B3 [Concomitant]
     Active Substance: NIACIN
     Dosage: 2000 IU, 1X/DAY
  18. GLIMEPIRIDE [Concomitant]
     Active Substance: GLIMEPIRIDE
     Dosage: 2 MG
  19. FARXIGA [Concomitant]
     Active Substance: DAPAGLIFLOZIN PROPANEDIOL
     Dosage: UNK
     Dates: start: 20230805

REACTIONS (5)
  - Therapeutic response unexpected [Unknown]
  - Weight decreased [Unknown]
  - Red blood cell count decreased [Not Recovered/Not Resolved]
  - Increased appetite [Recovered/Resolved]
  - Arthritis [Unknown]
